FAERS Safety Report 5118084-4 (Version None)
Quarter: 2006Q4

REPORT INFORMATION
  Report Type: 
  Country: None (occurrence: None)
  Receive Date: 20061002
  Receipt Date: 20060921
  Transmission Date: 20070319
  Serious: Yes (Hospitalization)
  Sender: FDA-Public Use
  Company Number: DE-JNJFOC-20060602853

PATIENT
  Age: 41 Year
  Sex: Female
  Weight: 59 kg

DRUGS (7)
  1. REMICADE [Suspect]
     Dosage: SEVENTH INFUSION
     Route: 042
  2. REMICADE [Suspect]
     Dosage: SIXTH INFUSION
     Route: 042
  3. REMICADE [Suspect]
     Dosage: FIFTH INFUSION
     Route: 042
  4. REMICADE [Suspect]
     Dosage: FOURTH INFUSION
     Route: 042
  5. REMICADE [Suspect]
     Indication: CROHN'S DISEASE
     Dosage: TOTAL OF 3 INFUSIONS
     Route: 042
  6. PREDNISOLONE [Concomitant]
     Indication: CROHN'S DISEASE
     Route: 048
  7. AZATHIOPRINE [Concomitant]
     Indication: CROHN'S DISEASE
     Route: 048

REACTIONS (1)
  - BREAST CANCER [None]
